FAERS Safety Report 19180625 (Version 2)
Quarter: 2021Q2

REPORT INFORMATION
  Report Type: Report from Study
  Country: FR (occurrence: FR)
  Receive Date: 20210426
  Receipt Date: 20210504
  Transmission Date: 20210717
  Serious: Yes (Other)
  Sender: FDA-Public Use
  Company Number: FR-GLAXOSMITHKLINE-FR2020EME238481

PATIENT
  Age: 54 Year
  Sex: Male
  Weight: 86 kg

DRUGS (2)
  1. BELANTAMAB MAFODOTIN. [Suspect]
     Active Substance: BELANTAMAB MAFODOTIN
     Indication: PLASMA CELL MYELOMA
     Dosage: 2.5 MG/KG, CYC
     Route: 042
     Dates: start: 20201019
  2. BELANTAMAB MAFODOTIN. [Suspect]
     Active Substance: BELANTAMAB MAFODOTIN
     Dosage: 2.5 MG/KG, CYC
     Route: 042
     Dates: start: 20201116

REACTIONS (3)
  - Thrombocytopenia [Unknown]
  - Choroidal effusion [Recovered/Resolved]
  - Anterior chamber disorder [Unknown]

NARRATIVE: CASE EVENT DATE: 20201116
